FAERS Safety Report 7280895-7 (Version None)
Quarter: 2011Q1

REPORT INFORMATION
  Report Type: 
  Country: None (occurrence: None)
  Receive Date: 20110208
  Receipt Date: 20110204
  Transmission Date: 20110831
  Serious: Yes (Other)
  Sender: FDA-Public Use
  Company Number: TN-BRISTOL-MYERS SQUIBB COMPANY-15534712

PATIENT
  Age: 54 Year

DRUGS (1)
  1. AMOXICILLIN [Suspect]

REACTIONS (1)
  - HYPERSENSITIVITY [None]
